FAERS Safety Report 8171193-8 (Version None)
Quarter: 2012Q1

REPORT INFORMATION
  Report Type: 
  Country: None (occurrence: None)
  Receive Date: 20120228
  Receipt Date: 20111215
  Transmission Date: 20120608
  Serious: Yes (Hospitalization, Other)
  Sender: FDA-Public Use
  Company Number: US-BRISTOL-MYERS SQUIBB COMPANY-16296204

PATIENT
  Age: 4 Decade
  Sex: Female

DRUGS (2)
  1. GLUCOPHAGE [Concomitant]
  2. ONGLYZA [Suspect]

REACTIONS (1)
  - PANCREATITIS [None]
